FAERS Safety Report 4751594-8 (Version None)
Quarter: 2005Q3

REPORT INFORMATION
  Report Type: 
  Country: None (occurrence: None)
  Receive Date: 20050822
  Receipt Date: 20050816
  Transmission Date: 20060218
  Serious: Yes (Hospitalization)
  Sender: FDA-Public Use
  Company Number: FRWYE910616AUG05

PATIENT
  Age: 84 Year
  Sex: Male

DRUGS (5)
  1. EFFEXOR [Suspect]
     Route: 048
     Dates: start: 20050701, end: 20050713
  2. AMLODIPINE BESYLATE [Suspect]
     Dates: end: 20050719
  3. BACTRIM [Suspect]
     Indication: URINARY TRACT INFECTION
     Dates: start: 20050707, end: 20050712
  4. CLONIDINE [Suspect]
     Dosage: ORAL
     Route: 048
     Dates: end: 20050719
  5. CORDARONE [Suspect]
     Dosage: ORAL
     Route: 048
     Dates: end: 20050719

REACTIONS (4)
  - DERMATITIS BULLOUS [None]
  - STEVENS-JOHNSON SYNDROME [None]
  - TOXIC EPIDERMAL NECROLYSIS [None]
  - URINARY TRACT INFECTION [None]
